FAERS Safety Report 8127787-9 (Version None)
Quarter: 2011Q4

REPORT INFORMATION
  Report Type: 
  Country: None (occurrence: None)
  Receive Date: 20111227
  Receipt Date: 20111115
  Transmission Date: 20120403
  Serious: No
  Sender: FDA-Public Use
  Company Number: PHHY2011US66335

PATIENT
  Age: 46 Year
  Sex: Male
  Weight: 93 kg

DRUGS (5)
  1. TIZANIDINE HCL [Concomitant]
  2. ZANAFELX (TIZANIDINE HYDROCHLORIDE) [Concomitant]
  3. GILENYA [Suspect]
     Indication: MULTIPLE SCLEROSIS
     Dosage: 0.5 MG, DAILY, ORAL
     Route: 048
     Dates: start: 20110719
  4. OXYCODONE HCL [Concomitant]
  5. MELOXICAM [Concomitant]

REACTIONS (7)
  - DIARRHOEA [None]
  - SCAR [None]
  - DIZZINESS [None]
  - PRURITUS [None]
  - RESTLESSNESS [None]
  - SOMNOLENCE [None]
  - RASH PUSTULAR [None]
